FAERS Safety Report 6099051-3 (Version None)
Quarter: 2009Q1

REPORT INFORMATION
  Report Type: 
  Country: None (occurrence: None)
  Receive Date: 20090302
  Receipt Date: 20090216
  Transmission Date: 20090719
  Serious: Yes (Other)
  Sender: FDA-Public Use
  Company Number: NL-TEVA-185773ISR

PATIENT
  Age: 52 Year
  Sex: Female

DRUGS (5)
  1. CARBAMAZEPINE [Suspect]
  2. CYCLOPHOSPHAMIDE [Interacting]
  3. THIOTEPA [Interacting]
  4. VIGABATRIN [Concomitant]
  5. CARBOPLATIN [Concomitant]

REACTIONS (1)
  - DRUG INTERACTION [None]
